FAERS Safety Report 6844190-X (Version None)
Quarter: 2010Q3

REPORT INFORMATION
  Report Type: 
  Country: None (occurrence: None)
  Receive Date: 20100715
  Receipt Date: 20100708
  Transmission Date: 20110219
  Serious: Yes (Hospitalization)
  Sender: FDA-Public Use
  Company Number: A0870264A

PATIENT
  Age: 32 Year
  Sex: Male

DRUGS (3)
  1. AVANDIA [Suspect]
     Route: 048
     Dates: start: 20050713, end: 20060101
  2. AVANDAMET [Suspect]
     Route: 048
     Dates: start: 20051003, end: 20061114
  3. AVANDARYL [Suspect]
     Route: 048
     Dates: start: 20070116, end: 20070620

REACTIONS (1)
  - CEREBROVASCULAR ACCIDENT [None]
